FAERS Safety Report 16981641 (Version 4)
Quarter: 2020Q3

REPORT INFORMATION
  Report Type: Report from Study
  Country: None (occurrence: IL)
  Receive Date: 20191101
  Receipt Date: 20200706
  Transmission Date: 20201102
  Serious: Yes (Other)
  Sender: FDA-Public Use
  Company Number: IL-ABBVIE-19K-082-2980697-00

PATIENT
  Sex: Female

DRUGS (2)
  1. DUODOPA [Suspect]
     Active Substance: CARBIDOPA\LEVODOPA
     Indication: PARKINSON^S DISEASE
     Route: 050
     Dates: start: 20160719
  2. DUODOPA [Suspect]
     Active Substance: CARBIDOPA\LEVODOPA
     Dosage: CURRENT MORNING DOSE? 3 ML, CURRENT FIXED RATE?2.7 ML/ HOUR DOSAGE DECREASED
     Route: 050

REACTIONS (7)
  - Constipation [Not Recovered/Not Resolved]
  - Stoma site erythema [Unknown]
  - Stoma site pain [Unknown]
  - Back pain [Recovering/Resolving]
  - Stoma site discharge [Unknown]
  - Dyskinesia [Not Recovered/Not Resolved]
  - Anxiety [Recovering/Resolving]

NARRATIVE: CASE EVENT DATE: 201910
